FAERS Safety Report 4285444-3 (Version None)
Quarter: 2004Q1

REPORT INFORMATION
  Report Type: 
  Country: None (occurrence: None)
  Receive Date: 20040202
  Receipt Date: 20040202
  Transmission Date: 20041129
  Serious: No
  Sender: FDA-Public Use
  Company Number: None

PATIENT
  Age: 75 Year
  Sex: Female
  Weight: 70 kg

DRUGS (6)
  1. HYDROMORPHONE HCL [Suspect]
     Indication: PAIN
     Dosage: BASAL 0.2 MG/HR DEMAND 0.2 Q 15 MIN IV
     Route: 042
     Dates: start: 20030918
  2. GENTAMICIN [Concomitant]
  3. AMPICILLIN [Concomitant]
  4. ACETAMINOPHEN [Concomitant]
  5. HEPARIN [Concomitant]
  6. METOPROLOL [Concomitant]

REACTIONS (3)
  - DEPRESSED LEVEL OF CONSCIOUSNESS [None]
  - HEART RATE INCREASED [None]
  - OXYGEN SATURATION DECREASED [None]
